FAERS Safety Report 8012824-2 (Version None)
Quarter: 2011Q4

REPORT INFORMATION
  Report Type: 
  Country: None (occurrence: None)
  Receive Date: 20111229
  Receipt Date: 20111219
  Transmission Date: 20120403
  Serious: Yes (Other)
  Sender: FDA-Public Use
  Company Number: JP-BRISTOL-MYERS SQUIBB COMPANY-16313496

PATIENT

DRUGS (2)
  1. ABILIFY [Suspect]
     Dosage: INITIALLY GIVEN 6MG THEN INCREASED TO 12MG ON 5DEC11,THEN AGAIN INCREASED TO 18MG
     Route: 048
     Dates: start: 20111128
  2. RISPERIDONE [Concomitant]
     Dates: start: 20111128, end: 20111204

REACTIONS (4)
  - DELIRIUM [None]
  - HALLUCINATION [None]
  - DELUSION [None]
  - DRUG ERUPTION [None]
